FAERS Safety Report 7272927-7 (Version None)
Quarter: 2010Q4

REPORT INFORMATION
  Report Type: 
  Country: None (occurrence: None)
  Receive Date: 20101201
  Receipt Date: 20100428
  Transmission Date: 20110411
  Serious: Yes (Life-Threatening, Hospitalization)
  Sender: FDA-Public Use
  Company Number: 302216

PATIENT
  Age: 52 Year
  Sex: Female
  Weight: 107 kg

DRUGS (4)
  1. NOVOLOG [Suspect]
     Indication: TYPE 1 DIABETES MELLITUS
     Dosage: SUBCUTAN.-PUMP, 25 U, EVERY HOUR X4 DOSES
     Route: 058
     Dates: start: 20060101
  2. LISINOPRIL [Concomitant]
  3. ASPIRIN [Concomitant]
  4. LANTUS [Concomitant]

REACTIONS (1)
  - DIABETIC KETOACIDOSIS [None]
